FAERS Safety Report 22605770 (Version 1)
Quarter: 2023Q2

REPORT INFORMATION
  Report Type: Report from Study
  Country: KR (occurrence: KR)
  Receive Date: 20230615
  Receipt Date: 20230615
  Transmission Date: 20230722
  Serious: No
  Sender: FDA-Public Use
  Company Number: KR-JNJFOC-20230615879

PATIENT

DRUGS (2)
  1. REMICADE [Suspect]
     Active Substance: INFLIXIMAB
     Indication: Inflammatory bowel disease
     Route: 058
  2. REMICADE [Suspect]
     Active Substance: INFLIXIMAB
     Route: 041

REACTIONS (8)
  - COVID-19 [Unknown]
  - Skin lesion [Unknown]
  - Herpes zoster [Unknown]
  - Calculus urinary [Unknown]
  - Cholelithiasis [Unknown]
  - Endometrial neoplasm [Unknown]
  - Off label use [Unknown]
  - Therapeutic response decreased [Unknown]
